FAERS Safety Report 15196451 (Version 1)
Quarter: 2018Q3

REPORT INFORMATION
  Report Type: Spontaneous
  Country: BR (occurrence: BR)
  Receive Date: 20180725
  Receipt Date: 20180725
  Transmission Date: 20181010
  Serious: Yes (Other)
  Sender: FDA-Public Use
  Company Number: BR-SA-2018SA200467

PATIENT
  Age: 53 Year
  Sex: Female

DRUGS (5)
  1. CEFAZOLIN [Concomitant]
     Active Substance: CEFAZOLIN
     Dosage: 1 G, QD
     Route: 042
     Dates: start: 20180713, end: 20180714
  2. HYDROCORTISONE. [Concomitant]
     Active Substance: HYDROCORTISONE
     Dosage: 300 MG QD
     Route: 042
     Dates: start: 20180713, end: 20180713
  3. METAMIZOLE SODIUM [Concomitant]
     Active Substance: METAMIZOLE SODIUM
     Dosage: 1000 MG, QD
     Route: 042
     Dates: start: 20180713, end: 20180713
  4. RANITIDINE. [Concomitant]
     Active Substance: RANITIDINE
     Dosage: 100 MG, QD
     Route: 042
     Dates: start: 20180713
  5. THYMOGLOBULINE [Suspect]
     Active Substance: LAPINE T-LYMPHOCYTE IMMUNE GLOBULIN
     Dosage: 175 MG, QD
     Route: 042
     Dates: start: 20180713, end: 20180714

REACTIONS (2)
  - Hypotension [Unknown]
  - Bradycardia [Unknown]
